FAERS Safety Report 4796669-2 (Version None)
Quarter: 2005Q4

REPORT INFORMATION
  Report Type: 
  Country: None (occurrence: None)
  Receive Date: 20051011
  Receipt Date: 20050407
  Transmission Date: 20060501
  Serious: Yes (Other)
  Sender: FDA-Public Use
  Company Number: US-JNJFOC-20050306447

PATIENT
  Age: 28 Year
  Sex: Male

DRUGS (2)
  1. ULTRACET [Suspect]
     Dosage: 8 IN 1 DAY, ORAL; SEE IMAGE
     Route: 048
  2. LORTAB [Concomitant]

REACTIONS (1)
  - CONVULSION [None]
